FAERS Safety Report 5645490-1 (Version None)
Quarter: 2008Q1

REPORT INFORMATION
  Report Type: 
  Country: None (occurrence: None)
  Receive Date: 20080229
  Receipt Date: 20071130
  Transmission Date: 20080703
  Serious: No
  Sender: FDA-Public Use
  Company Number: US-BRISTOL-MYERS SQUIBB COMPANY-14000129

PATIENT
  Age: 55 Year
  Sex: Male

DRUGS (4)
  1. TAXOL [Suspect]
     Indication: MALIGNANT MELANOMA
     Route: 042
  2. CARBOPLATIN [Concomitant]
  3. DEXAMETHASONE TAB [Concomitant]
  4. BENADRYL [Concomitant]

REACTIONS (4)
  - EXTRAVASATION [None]
  - INJECTION SITE WARMTH [None]
  - OEDEMA [None]
  - SKIN EXFOLIATION [None]
